FAERS Safety Report 5717158-4 (Version None)
Quarter: 2008Q2

REPORT INFORMATION
  Report Type: 
  Country: None (occurrence: None)
  Receive Date: 20080423
  Receipt Date: 20080414
  Transmission Date: 20081010
  Serious: Yes (Other)
  Sender: FDA-Public Use
  Company Number: GXBR2008US00907

PATIENT
  Age: 78 Year
  Sex: Female
  Weight: 56.2 kg

DRUGS (3)
  1. CARBIDOPA/LEVODOPA TABLETS USP (NGX)(CARBIDOPA, LEVODOPA) TABLET [Suspect]
     Indication: PARKINSON'S DISEASE
     Dosage: 25/100 MG TID, ORAL
     Route: 048
     Dates: start: 20070701, end: 20080201
  2. PLAVIX [Concomitant]
  3. KEPPRA [Concomitant]

REACTIONS (1)
  - MALIGNANT MELANOMA [None]
